FAERS Safety Report 9286075 (Version 1)
Quarter: 2013Q2

REPORT INFORMATION
  Report Type: Spontaneous
  Country: US (occurrence: None)
  Receive Date: 20130510
  Receipt Date: 20130510
  Transmission Date: 20140414
  Serious: Yes (Other)
  Sender: FDA-Public Use
  Company Number: None

PATIENT
  Age: 51 Year
  Sex: Female
  Weight: 122.47 kg

DRUGS (1)
  1. LOSARTAN [Suspect]
     Indication: HYPERTENSION
     Dosage: 1 PILL QD PO
     Dates: start: 20120616, end: 20130331

REACTIONS (3)
  - Palpitations [None]
  - Heart rate irregular [None]
  - Activities of daily living impaired [None]
